FAERS Safety Report 5826029-4 (Version None)
Quarter: 2008Q3

REPORT INFORMATION
  Report Type: 
  Country: None (occurrence: None)
  Receive Date: 20080729
  Receipt Date: 20080721
  Transmission Date: 20090109
  Serious: Yes (Other)
  Sender: FDA-Public Use
  Company Number: US-ELI_LILLY_AND_COMPANY-US200807004276

PATIENT
  Sex: Female

DRUGS (2)
  1. FORTEO [Suspect]
     Dates: start: 20060101
  2. FORTEO [Suspect]

REACTIONS (4)
  - BONE PAIN [None]
  - COMPRESSION FRACTURE [None]
  - LUNG DISORDER [None]
  - PULMONARY FIBROSIS [None]
